FAERS Safety Report 5965042-3 (Version None)
Quarter: 2008Q4

REPORT INFORMATION
  Report Type: 
  Country: None (occurrence: None)
  Receive Date: 20081125
  Receipt Date: 20081114
  Transmission Date: 20090506
  Serious: Yes (Other)
  Sender: FDA-Public Use
  Company Number: PHHY2008PE28468

PATIENT
  Age: 83 Year
  Sex: Male

DRUGS (5)
  1. SANDIMMUNE [Suspect]
     Indication: MYELODYSPLASTIC SYNDROME
     Dosage: 100 MG/KG, QD
     Dates: start: 20081010
  2. PLAVIX [Concomitant]
     Dosage: UNK
     Route: 065
  3. LIPITOR [Concomitant]
     Dosage: UNK
     Route: 065
  4. NORVASC [Concomitant]
     Dosage: UNK
     Route: 065
  5. EPOGEN [Concomitant]
     Dosage: ONCE/SINGLE
     Route: 065
     Dates: start: 20081001

REACTIONS (7)
  - ANAEMIA [None]
  - ASTHENIA [None]
  - LIP DISORDER [None]
  - MYALGIA [None]
  - THROMBOCYTOPENIA [None]
  - TRANSFUSION [None]
  - TREMOR [None]
